FAERS Safety Report 17214220 (Version 1)
Quarter: 2020Q1

REPORT INFORMATION
  Report Type: Spontaneous
  Country: US (occurrence: US)
  Receive Date: 20191227
  Receipt Date: 20191227
  Transmission Date: 20200409
  Serious: Yes (Hospitalization)
  Sender: FDA-Public Use
  Company Number: None

PATIENT
  Age: 29 Year
  Weight: 47.25 kg

DRUGS (1)
  1. ATOMOXETINE CAPSULES, USP [Suspect]
     Active Substance: ATOMOXETINE
     Indication: ATTENTION DEFICIT/HYPERACTIVITY DISORDER
     Dosage: ?          QUANTITY:1 CAPSULE(S);?
     Route: 048
     Dates: start: 20191103, end: 20191212

REACTIONS (10)
  - Anger [None]
  - Nightmare [None]
  - Decreased appetite [None]
  - Insomnia [None]
  - Dehydration [None]
  - Mood swings [None]
  - Somnolence [None]
  - Impulsive behaviour [None]
  - Aggression [None]
  - Suicidal ideation [None]

NARRATIVE: CASE EVENT DATE: 20191210
